FAERS Safety Report 5623824-1 (Version None)
Quarter: 2008Q1

REPORT INFORMATION
  Report Type: 
  Country: None (occurrence: None)
  Receive Date: 20080207
  Receipt Date: 20080128
  Transmission Date: 20080703
  Serious: Yes (Death, Hospitalization)
  Sender: FDA-Public Use
  Company Number: 2008S1001505

PATIENT
  Sex: Female

DRUGS (3)
  1. NITROFURANTOIN [Suspect]
     Indication: PROPHYLAXIS URINARY TRACT INFECTION
     Dosage: 50 MG; AT BEDTIME; ORAL
     Route: 048
     Dates: start: 20040101, end: 20070901
  2. NITROFURANTOIN [Suspect]
     Indication: PROPHYLAXIS URINARY TRACT INFECTION
     Dosage: 50 MG; AT BEDTIME; ORAL
     Route: 048
     Dates: start: 20040101, end: 20070901
  3. NITROFURANTOIN [Suspect]
     Indication: PROPHYLAXIS URINARY TRACT INFECTION
     Dosage: 50 MG; AT BEDTIME; ORAL
     Route: 048
     Dates: start: 20040101, end: 20070901

REACTIONS (4)
  - BILIARY CIRRHOSIS [None]
  - HEPATOTOXICITY [None]
  - PULMONARY TOXICITY [None]
  - TRANSAMINASES INCREASED [None]
